FAERS Safety Report 8507816-0 (Version None)
Quarter: 2012Q3

REPORT INFORMATION
  Report Type: 
  Country: None (occurrence: None)
  Receive Date: 20120713
  Receipt Date: 20120711
  Transmission Date: 20120928
  Serious: Yes (Death)
  Sender: FDA-Public Use
  Company Number: PHHY2012RU059403

PATIENT
  Sex: Female

DRUGS (1)
  1. IMATINIB MESYLATE [Suspect]
     Dosage: 400 MG, DAILY
     Route: 048
     Dates: start: 20110926, end: 20120520

REACTIONS (2)
  - AGRANULOCYTOSIS [None]
  - PNEUMONIA [None]
